FAERS Safety Report 4749102-0 (Version None)
Quarter: 2005Q3

REPORT INFORMATION
  Report Type: 
  Country: None (occurrence: None)
  Receive Date: 20050817
  Receipt Date: 20050804
  Transmission Date: 20060218
  Serious: No
  Sender: FDA-Public Use
  Company Number: CERZ-10968

PATIENT
  Age: 73 Year
  Sex: Male

DRUGS (1)
  1. CEREZYME [Suspect]
     Indication: GAUCHER'S DISEASE
     Dates: start: 19990630

REACTIONS (1)
  - MULTIPLE MYELOMA [None]
